FAERS Safety Report 16146520 (Version 1)
Quarter: 2019Q2

REPORT INFORMATION
  Report Type: Spontaneous
  Country: GR (occurrence: GR)
  Receive Date: 20190402
  Receipt Date: 20190402
  Transmission Date: 20190711
  Serious: Yes (Hospitalization, Other)
  Sender: FDA-Public Use
  Company Number: GR-CELGENEUS-GRC-20190307942

PATIENT
  Age: 70 Year
  Sex: Male

DRUGS (2)
  1. VIDAZA [Suspect]
     Active Substance: AZACITIDINE
     Indication: MYELODYSPLASTIC SYNDROME
     Dosage: 2.6786 MICROGRAM/SQ. METER
     Route: 058
  2. VIDAZA [Suspect]
     Active Substance: AZACITIDINE
     Indication: NEPHROPATHY

REACTIONS (6)
  - Pancytopenia [Unknown]
  - Haematoma [Recovered/Resolved]
  - Febrile neutropenia [Recovered/Resolved]
  - Arteriovenous fistula thrombosis [Recovered/Resolved]
  - Therapy non-responder [Unknown]
  - Sepsis [Recovered/Resolved]
